FAERS Safety Report 14448632 (Version 5)
Quarter: 2018Q2

REPORT INFORMATION
  Report Type: Spontaneous
  Country: CA (occurrence: CA)
  Receive Date: 20180126
  Receipt Date: 20180426
  Transmission Date: 20180711
  Serious: Yes (Other)
  Sender: FDA-Public Use
  Company Number: CA-PFIZER INC-2017335956

PATIENT
  Age: 45 Year
  Sex: Male
  Weight: 65 kg

DRUGS (11)
  1. INFLECTRA [Suspect]
     Active Substance: INFLIXIMAB-DYYB
     Dosage: 330 MG, CYCLIC (EVERY 0,2,6 WEEKS THEN EVERY 4 WEEKS)
     Route: 042
     Dates: start: 20180123
  2. INFLECTRA [Suspect]
     Active Substance: INFLIXIMAB-DYYB
     Dosage: 330 MG, UNK (EVERY 8 WEEKS)
     Route: 042
     Dates: start: 20171127
  3. INFLECTRA [Suspect]
     Active Substance: INFLIXIMAB-DYYB
     Dosage: 330 MG, CYCLIC ( EVERY 0,2,6 WEEKS THEN EVERY 4 WEEKS)
     Dates: start: 20180419
  4. ADVIL [Suspect]
     Active Substance: IBUPROFEN
     Dosage: UNK, 4X/DAY (EVERY 6 HOURS)
     Route: 048
  5. INFLECTRA [Suspect]
     Active Substance: INFLIXIMAB-DYYB
     Dosage: 330 MG, CYCLIC (EVERY 8 WEEKS)
     Route: 042
     Dates: start: 20170302, end: 20171127
  6. INFLECTRA [Suspect]
     Active Substance: INFLIXIMAB-DYYB
     Dosage: 330 MG, UNK (EVERY 8 WEEKS)
     Route: 042
     Dates: start: 20171127, end: 20171127
  7. IMURAN [Concomitant]
     Active Substance: AZATHIOPRINE
     Indication: CROHN^S DISEASE
     Dosage: 150 MG, 1X/DAY
     Route: 048
     Dates: start: 201609
  8. IMURAN [Concomitant]
     Active Substance: AZATHIOPRINE
     Dosage: 100 MG, 1X/DAY
     Route: 048
     Dates: start: 201712
  9. PREDNISONE. [Concomitant]
     Active Substance: PREDNISONE
     Dosage: 20 MG, 1X/DAY
     Route: 048
     Dates: start: 201712
  10. INFLECTRA [Suspect]
     Active Substance: INFLIXIMAB-DYYB
     Indication: CROHN^S DISEASE
     Dosage: 330 MG, CYCLIC (Q 0, 2, 6 WEEKS, THEN EVERY 8 WEEKS)
     Route: 042
     Dates: start: 20170302
  11. INFLECTRA [Suspect]
     Active Substance: INFLIXIMAB-DYYB
     Dosage: 330 MG, CYCLIC ( EVERY 0, 2, 6 WEEKS, THEN EVERY 4 WEEKS)
     Route: 042
     Dates: start: 20180308

REACTIONS (10)
  - Feeling hot [Recovered/Resolved]
  - C-reactive protein increased [Unknown]
  - Drug level below therapeutic [Recovering/Resolving]
  - Crohn^s disease [Recovering/Resolving]
  - Chills [Recovered/Resolved]
  - Product use issue [Unknown]
  - Pyrexia [Recovered/Resolved]
  - Abdominal discomfort [Recovered/Resolved]
  - Diarrhoea [Not Recovered/Not Resolved]
  - Heart rate irregular [Unknown]

NARRATIVE: CASE EVENT DATE: 201707
